FAERS Safety Report 8421535-0 (Version None)
Quarter: 2012Q2

REPORT INFORMATION
  Report Type: 
  Country: None (occurrence: None)
  Receive Date: 20120608
  Receipt Date: 20120530
  Transmission Date: 20120825
  Serious: Yes (Hospitalization)
  Sender: FDA-Public Use
  Company Number: JP-JNJFOC-20120601412

PATIENT
  Age: 68 Year
  Sex: Female

DRUGS (2)
  1. MOTILIUM [Concomitant]
     Indication: ANTIEMETIC SUPPORTIVE CARE
     Route: 065
  2. TRAMADOL HYDROCHLORIDE AND ACETAMINOPHEN [Suspect]
     Indication: PAIN
     Route: 048

REACTIONS (1)
  - LIVER DISORDER [None]
